FAERS Safety Report 9966440 (Version 2)
Quarter: 2014Q1

REPORT INFORMATION
  Report Type: Report from Study
  Country: US (occurrence: US)
  Receive Date: 20140305
  Receipt Date: 20140305
  Transmission Date: 20141002
  Serious: No
  Sender: FDA-Public Use
  Company Number: US-ABBVIE-13P-163-1114133-00

PATIENT
  Age: 41 Year
  Sex: Female

DRUGS (17)
  1. HUMIRA [Suspect]
     Indication: CROHN^S DISEASE
     Route: 058
     Dates: start: 20130518
  2. LEVOTHYROXINE [Concomitant]
     Indication: HYPOTHYROIDISM
  3. PRILOSEC [Concomitant]
     Indication: DYSPEPSIA
  4. TYLENOL EXTRA STRENGTH [Concomitant]
     Indication: ARTHRALGIA
  5. CALCIUM CHEWS WITH D AND K [Concomitant]
     Indication: PRODUCT USED FOR UNKNOWN INDICATION
  6. ZEBETA [Concomitant]
     Indication: TACHYCARDIA
     Dosage: 1/4 OF A 5MG PILL ONCE DAILY
  7. REMERON [Concomitant]
     Indication: ANTIDEPRESSANT THERAPY
     Dosage: 60 MG ONCE AT NIGHT
  8. LUVOX [Concomitant]
     Indication: OBSESSIVE-COMPULSIVE DISORDER
     Dosage: 150 MG SLOW RELEASE AT NIGHT
  9. LUVOX [Concomitant]
     Indication: ANXIETY
  10. LUVOX [Concomitant]
     Indication: DEPRESSION
  11. FERROUS GLUCONATE [Concomitant]
     Indication: MINERAL SUPPLEMENTATION
     Dates: end: 201304
  12. FERROUS GLUCONATE [Concomitant]
     Indication: ANXIETY
     Dates: start: 201306
  13. FERROUS GLUCONATE [Concomitant]
     Indication: DEPRESSION
  14. IMODIUM [Concomitant]
     Indication: MINERAL SUPPLEMENTATION
     Dates: start: 201306
  15. IMODIUM [Concomitant]
     Indication: ANXIETY
  16. IMODIUM [Concomitant]
     Indication: DEPRESSION
  17. PREDNISONE [Concomitant]
     Indication: PRODUCT USED FOR UNKNOWN INDICATION
     Dosage: TAPERED OFF
     Dates: end: 201306

REACTIONS (2)
  - Diarrhoea [Recovering/Resolving]
  - Diarrhoea [Recovering/Resolving]
